FAERS Safety Report 11126144 (Version 3)
Quarter: 2017Q2

REPORT INFORMATION
  Report Type: Spontaneous
  Country: US (occurrence: US)
  Receive Date: 20150520
  Receipt Date: 20170526
  Transmission Date: 20170829
  Serious: Yes (Other)
  Sender: FDA-Public Use
  Company Number: US-AMGEN-USASP2015047871

PATIENT
  Age: 46 Year
  Sex: Female

DRUGS (1)
  1. ENBREL [Suspect]
     Active Substance: ETANERCEPT
     Indication: RHEUMATOID ARTHRITIS
     Dosage: 50 MG, QWK
     Route: 058
     Dates: end: 20170519

REACTIONS (4)
  - Fatigue [Unknown]
  - Injection site pain [Unknown]
  - Drug effect decreased [Unknown]
  - Ulcerative keratitis [Unknown]

NARRATIVE: CASE EVENT DATE: 201611
